FAERS Safety Report 5265153-4 (Version None)
Quarter: 2007Q1

REPORT INFORMATION
  Report Type: 
  Country: None (occurrence: None)
  Receive Date: 20061208
  Receipt Date: 20060724
  Transmission Date: 20070707
  Serious: Yes (Life-Threatening, Hospitalization)
  Sender: FDA-Public Use
  Company Number: 059

PATIENT
  Sex: Male

DRUGS (9)
  1. FAZACLO ODT [Suspect]
     Indication: SCHIZOPHRENIA
     Dosage: 350 MG. PO DAILY
     Route: 048
     Dates: start: 20060607
  2. COGENTIN [Concomitant]
  3. RANITIDINE [Concomitant]
  4. LOXAPINE [Concomitant]
  5. TRAZODONE HCL [Concomitant]
  6. NEURONTIN [Concomitant]
  7. REMERON [Concomitant]
  8. NORTRIPTYLINE HCL [Concomitant]
  9. ATROPINE OPHTHALMIC DROPS [Concomitant]

REACTIONS (2)
  - DEEP VEIN THROMBOSIS [None]
  - PULMONARY EMBOLISM [None]
